FAERS Safety Report 5485674-9 (Version None)
Quarter: 2007Q4

REPORT INFORMATION
  Report Type: 
  Country: None (occurrence: None)
  Receive Date: 20071015
  Receipt Date: 20070821
  Transmission Date: 20080405
  Serious: Yes (Death, Other)
  Sender: FDA-Public Use
  Company Number: US-PURDUE-USA_2007_0029020

PATIENT
  Age: 44 Year
  Sex: Male

DRUGS (1)
  1. OXYCONTIN [Suspect]
     Indication: BACK PAIN
     Dosage: UNK MG, UNK
     Route: 048
     Dates: end: 20010627

REACTIONS (8)
  - DEATH [None]
  - DRUG DEPENDENCE [None]
  - HEPATITIS [None]
  - LUNG CANCER METASTATIC [None]
  - MALAISE [None]
  - METASTASES TO BONE [None]
  - METASTASES TO LIVER [None]
  - UPPER LIMB FRACTURE [None]
